FAERS Safety Report 4430180-3 (Version None)
Quarter: 2004Q3

REPORT INFORMATION
  Report Type: 
  Country: None (occurrence: None)
  Receive Date: 20040820
  Receipt Date: 20040810
  Transmission Date: 20050211
  Serious: Yes (Hospitalization)
  Sender: FDA-Public Use
  Company Number: FR-BRISTOL-MYERS SQUIBB COMPANY-12665907

PATIENT
  Age: 41 Year
  Sex: Male

DRUGS (2)
  1. VIDEX [Suspect]
     Indication: HIV INFECTION
     Route: 048
     Dates: start: 19990115, end: 20021215
  2. ZERIT [Suspect]
     Indication: HIV INFECTION
     Route: 048
     Dates: start: 19990115, end: 20021215

REACTIONS (3)
  - ANOREXIA [None]
  - LIPODYSTROPHY ACQUIRED [None]
  - WEIGHT DECREASED [None]
